FAERS Safety Report 18537351 (Version 2)
Quarter: 2025Q2

REPORT INFORMATION
  Report Type: Spontaneous
  Country: FR (occurrence: FR)
  Receive Date: 20201124
  Receipt Date: 20250619
  Transmission Date: 20250717
  Serious: Yes (Death, Life-Threatening, Other)
  Sender: AUROBINDO
  Company Number: FR-MLMSERVICE-20201106-2565467-1

PATIENT
  Age: 35 Year
  Sex: Female

DRUGS (6)
  1. METFORMIN [Suspect]
     Active Substance: METFORMIN HYDROCHLORIDE
     Indication: Diabetes mellitus
     Route: 065
  2. MIRTAZAPINE [Concomitant]
     Active Substance: MIRTAZAPINE
     Indication: Depression
     Route: 065
  3. ACETAMINOPHEN [Concomitant]
     Active Substance: ACETAMINOPHEN
     Indication: Product used for unknown indication
     Route: 065
  4. ATENOLOL [Concomitant]
     Active Substance: ATENOLOL
     Indication: Hypertension
     Route: 065
  5. INSULIN DETEMIR [Concomitant]
     Active Substance: INSULIN DETEMIR
     Indication: Diabetes mellitus
     Route: 065
  6. RAMIPRIL [Concomitant]
     Active Substance: RAMIPRIL
     Indication: Hypertension
     Route: 065

REACTIONS (8)
  - Overdose [Fatal]
  - Hypoglycaemia [Fatal]
  - Hepatic steatosis [Fatal]
  - Asphyxia [Fatal]
  - Cyanosis [Fatal]
  - Pulmonary oedema [Fatal]
  - Visceral congestion [Fatal]
  - Toxicity to various agents [Fatal]
